FAERS Safety Report 11624310 (Version 1)
Quarter: 2015Q4

REPORT INFORMATION
  Report Type: Spontaneous
  Country: None (occurrence: None)
  Receive Date: 20151009
  Receipt Date: 20151009
  Transmission Date: 20160304
  Serious: No
  Sender: FDA-Public Use
  Company Number: None

PATIENT
  Sex: Female

DRUGS (1)
  1. MORPHINE SULFATE TABLETS 60MG [Suspect]
     Active Substance: MORPHINE SULFATE

REACTIONS (1)
  - Drug screen false positive [None]
